FAERS Safety Report 24355857 (Version 1)
Quarter: 2024Q3

REPORT INFORMATION
  Report Type: Report from Study
  Country: US (occurrence: US)
  Receive Date: 20240924
  Receipt Date: 20240924
  Transmission Date: 20241017
  Serious: Yes (Hospitalization)
  Sender: ABBVIE
  Company Number: US-ABBVIE-5924168

PATIENT
  Sex: Female

DRUGS (1)
  1. SKYRIZI [Suspect]
     Active Substance: RISANKIZUMAB-RZAA
     Indication: Colitis ulcerative
     Route: 041
     Dates: start: 20240814

REACTIONS (9)
  - Influenza [Unknown]
  - Skin exfoliation [Recovering/Resolving]
  - Head injury [Unknown]
  - Ulcer [Unknown]
  - Diarrhoea [Unknown]
  - Dehydration [Unknown]
  - Pneumonia [Recovered/Resolved]
  - Fall [Unknown]
  - Pruritus [Recovering/Resolving]

NARRATIVE: CASE EVENT DATE: 20240101
